FAERS Safety Report 6082375-3 (Version None)
Quarter: 2009Q1

REPORT INFORMATION
  Report Type: 
  Country: None (occurrence: None)
  Receive Date: 20090130
  Receipt Date: 20080304
  Transmission Date: 20090719
  Serious: Yes (Hospitalization)
  Sender: FDA-Public Use
  Company Number: 8030430

PATIENT
  Age: 23 Year
  Sex: Male
  Weight: 62 kg

DRUGS (5)
  1. KEPPRA [Suspect]
     Indication: CONVULSION
     Dosage: 500 MG 2/D PO
     Route: 048
     Dates: start: 20080201, end: 20080229
  2. VORICONAZOLE [Concomitant]
  3. CELLCEPT [Concomitant]
  4. PREDNISONE [Concomitant]
  5. ENTOCORT EC [Concomitant]

REACTIONS (1)
  - MUSCULAR WEAKNESS [None]
